FAERS Safety Report 9264617 (Version 1)
Quarter: 2013Q2

REPORT INFORMATION
  Report Type: Spontaneous
  Country: US (occurrence: US)
  Receive Date: 20130501
  Receipt Date: 20130501
  Transmission Date: 20140414
  Serious: No
  Sender: FDA-Public Use
  Company Number: US-BIOGENIDEC-2013BI038379

PATIENT
  Age: 49 Year
  Sex: Female

DRUGS (7)
  1. TYSABRI [Suspect]
     Indication: MULTIPLE SCLEROSIS
     Route: 042
     Dates: start: 20110823
  2. PREVACID [Concomitant]
     Indication: PROPHYLAXIS
     Route: 048
  3. LEVOTHYROXINE [Concomitant]
     Indication: THYROID DISORDER
  4. VITAMIN D SUPPLEMENT 6000 UNITS DAILY [Concomitant]
     Indication: VITAMIN D DECREASED
  5. CAUDAL BLOCK [Concomitant]
     Indication: BACK PAIN
     Dates: start: 201303
  6. TYLENOL [Concomitant]
     Indication: INFLUENZA LIKE ILLNESS
  7. BENADRYL [Concomitant]
     Indication: INFLUENZA LIKE ILLNESS

REACTIONS (23)
  - White blood cell count increased [Recovered/Resolved]
  - Cough [Recovered/Resolved]
  - Blood urine present [Unknown]
  - Thyroid function test abnormal [Recovered/Resolved]
  - Central nervous system lesion [Unknown]
  - Blood alkaline phosphatase increased [Unknown]
  - Migraine [Not Recovered/Not Resolved]
  - Thyroid disorder [Unknown]
  - Fluid retention [Not Recovered/Not Resolved]
  - Exostosis [Unknown]
  - Spinal column injury [Unknown]
  - Intervertebral disc disorder [Unknown]
  - Pain in extremity [Unknown]
  - Back pain [Unknown]
  - Spinal fusion surgery [Unknown]
  - Back injury [Unknown]
  - Hypoaesthesia oral [Recovered/Resolved]
  - Neck injury [Unknown]
  - Hypoaesthesia [Unknown]
  - Nasopharyngitis [Recovered/Resolved]
  - Bronchitis [Recovered/Resolved]
  - Multiple sclerosis relapse [Recovered/Resolved]
  - Urinary tract infection [Unknown]
